FAERS Safety Report 8767552 (Version 2)
Quarter: 2012Q4

REPORT INFORMATION
  Report Type: 
  Country: US (occurrence: US)
  Receive Date: 20120904
  Receipt Date: 20121003
  Transmission Date: 20130627
  Serious: Yes (Other)
  Sender: FDA-Public Use
  Company Number: PHHY2012US076070

PATIENT
  Age: 76 Year
  Sex: Male

DRUGS (2)
  1. ASCRIPTIN BUFFERED ARTHRITISPAIN CAPLETS [Suspect]
     Indication: PAIN
     Route: 048
     Dates: start: 201205, end: 201208
  2. CELEBREX [Concomitant]
     Dates: start: 2009

REACTIONS (2)
  - Carotid artery occlusion [Not Recovered/Not Resolved]
  - Tongue cancer metastatic [Not Recovered/Not Resolved]
